FAERS Safety Report 4468104-5 (Version None)
Quarter: 2004Q4

REPORT INFORMATION
  Report Type: 
  Country: None (occurrence: None)
  Receive Date: 20041001
  Receipt Date: 20040916
  Transmission Date: 20050328
  Serious: Yes (Life-Threatening)
  Sender: FDA-Public Use
  Company Number: 2004AP04396

PATIENT
  Age: 74 Year
  Sex: Male

DRUGS (3)
  1. CASODEX [Suspect]
     Indication: PROSTATE CANCER
     Dosage: 80 MG DAILY PO
     Route: 048
     Dates: start: 20031024
  2. ZOLADEX [Suspect]
     Indication: PROSTATE CANCER
     Dosage: 10.8 MG Q3MO SQ
     Dates: start: 20031031, end: 20040623
  3. HARNAL [Concomitant]

REACTIONS (3)
  - BLINDNESS [None]
  - CEREBRAL HAEMORRHAGE [None]
  - HEADACHE [None]
